FAERS Safety Report 23721648 (Version 4)
Quarter: 2024Q3

REPORT INFORMATION
  Report Type: Report from Study
  Country: US (occurrence: US)
  Receive Date: 20240409
  Receipt Date: 20240708
  Transmission Date: 20241017
  Serious: No
  Sender: ALEXION PHARMACEUTICALS
  Company Number: US-AstraZeneca-CH-00600538A

PATIENT
  Age: 70 Year
  Sex: Male

DRUGS (1)
  1. ULTOMIRIS [Suspect]
     Active Substance: RAVULIZUMAB-CWVZ
     Indication: Myasthenia gravis
     Dosage: UNK
     Route: 065
     Dates: start: 20231003

REACTIONS (3)
  - Diplopia [Not Recovered/Not Resolved]
  - Asthenopia [Unknown]
  - Fatigue [Unknown]

NARRATIVE: CASE EVENT DATE: 20240404
